FAERS Safety Report 24528314 (Version 4)
Quarter: 2024Q4

REPORT INFORMATION
  Report Type: Report from Study
  Country: CA (occurrence: CA)
  Receive Date: 20241021
  Receipt Date: 20241209
  Transmission Date: 20250115
  Serious: Yes (Other)
  Sender: SANDOZ
  Company Number: CA-002147023-NVSC2023CA109174

PATIENT
  Sex: Female

DRUGS (4)
  1. HYRIMOZ [Suspect]
     Active Substance: ADALIMUMAB-ADAZ
     Dosage: 40MG WEEKLY; WEEKLY
     Route: 058
  2. HYRIMOZ [Suspect]
     Active Substance: ADALIMUMAB-ADAZ
     Dosage: 40 MG, Q2W (40 MG / 0.8 ML (PEN)
     Route: 058
     Dates: start: 20241014
  3. HYRIMOZ [Suspect]
     Active Substance: ADALIMUMAB-ADAZ
     Dosage: 40 MG;EVERY 2 WEEKS
     Route: 058
     Dates: start: 20241201
  4. HYRIMOZ [Suspect]
     Active Substance: ADALIMUMAB-ADAZ
     Indication: Ankylosing spondylitis
     Dosage: 40 MG
     Route: 058
     Dates: start: 20230117

REACTIONS (10)
  - Cataract [Unknown]
  - Fall [Unknown]
  - Pain in extremity [Unknown]
  - Dysarthria [Unknown]
  - Pain [Unknown]
  - Candida infection [Unknown]
  - Urinary tract infection [Not Recovered/Not Resolved]
  - Infection [Unknown]
  - Drug ineffective [Unknown]
  - Off label use [Unknown]
